FAERS Safety Report 12360396 (Version 1)
Quarter: 2016Q2

REPORT INFORMATION
  Report Type: Spontaneous
  Country: US (occurrence: US)
  Receive Date: 20160512
  Receipt Date: 20160512
  Transmission Date: 20160815
  Serious: Yes (Hospitalization)
  Sender: FDA-Public Use
  Company Number: US-RELYPSA-RLY2016000564

PATIENT

DRUGS (12)
  1. VITAMIN D3 [Concomitant]
     Active Substance: CHOLECALCIFEROL
  2. TACROLIMUS. [Concomitant]
     Active Substance: TACROLIMUS
  3. FUROSEMIDE. [Concomitant]
     Active Substance: FUROSEMIDE
  4. NOVOLOG [Concomitant]
     Active Substance: INSULIN ASPART
  5. VELTASSA [Suspect]
     Active Substance: PATIROMER
     Indication: HYPERKALAEMIA
     Dosage: 8.4 G, QD
     Route: 048
     Dates: start: 20160415
  6. PREDNISONE. [Concomitant]
     Active Substance: PREDNISONE
  7. CARVEDILOL. [Concomitant]
     Active Substance: CARVEDILOL
  8. DIOVAN [Concomitant]
     Active Substance: VALSARTAN
  9. GABAPENTIN. [Concomitant]
     Active Substance: GABAPENTIN
  10. HUMULIN N [Concomitant]
     Active Substance: INSULIN HUMAN
  11. HUMALOG [Concomitant]
     Active Substance: INSULIN LISPRO
  12. NIFEDICAL XL [Concomitant]
     Active Substance: NIFEDIPINE

REACTIONS (1)
  - Localised infection [Recovered/Resolved]

NARRATIVE: CASE EVENT DATE: 20160418
